FAERS Safety Report 13785500 (Version 1)
Quarter: 2017Q3

REPORT INFORMATION
  Report Type: Spontaneous
  Country: US (occurrence: US)
  Receive Date: 20170724
  Receipt Date: 20170724
  Transmission Date: 20171127
  Serious: Yes (Other)
  Sender: FDA-Public Use
  Company Number: None

PATIENT
  Age: 63 Year
  Sex: Female
  Weight: 112.5 kg

DRUGS (6)
  1. BLOOD PRESSURE MED [Concomitant]
  2. DOMPERIDONE [Concomitant]
     Active Substance: DOMPERIDONE
  3. PANTALOC [Concomitant]
  4. THYROID MED [Concomitant]
  5. INSULIN [Concomitant]
     Active Substance: INSULIN NOS
  6. GAMBEPENTIN [Suspect]
     Active Substance: GABAPENTIN
     Indication: FIBROMYALGIA
     Dosage: ?          OTHER STRENGTH:MG;QUANTITY:1 CAPSULE(S);?
     Route: 048
     Dates: start: 20170701, end: 20170704

REACTIONS (6)
  - Nausea [None]
  - Chest pain [None]
  - Balance disorder [None]
  - Dizziness [None]
  - Facial pain [None]
  - Headache [None]

NARRATIVE: CASE EVENT DATE: 20170701
